FAERS Safety Report 23387884 (Version 2)
Quarter: 2024Q1

REPORT INFORMATION
  Report Type: Spontaneous
  Country: US (occurrence: US)
  Receive Date: 20240110
  Receipt Date: 20240117
  Transmission Date: 20240409
  Serious: No
  Sender: FDA-Public Use
  Company Number: US-Blueprint Medicines Corporation-1924

PATIENT
  Sex: Female

DRUGS (1)
  1. AYVAKIT [Suspect]
     Active Substance: AVAPRITINIB
     Indication: Gastrointestinal stromal tumour
     Route: 065
     Dates: start: 20231121, end: 20240108

REACTIONS (6)
  - Swelling [Unknown]
  - Periorbital swelling [Unknown]
  - Eye swelling [Unknown]
  - Joint swelling [Unknown]
  - Diarrhoea [Unknown]
  - Dizziness [Unknown]
